FAERS Safety Report 5210645-7 (Version None)
Quarter: 2007Q1

REPORT INFORMATION
  Report Type: 
  Country: None (occurrence: None)
  Receive Date: 20070117
  Receipt Date: 20070112
  Transmission Date: 20070707
  Serious: Yes (Life-Threatening, Hospitalization)
  Sender: FDA-Public Use
  Company Number: FR-BRISTOL-MYERS SQUIBB COMPANY-13347166

PATIENT
  Age: 46 Year
  Sex: Female

DRUGS (3)
  1. ABILIFY [Suspect]
     Indication: SCHIZOPHRENIA
     Dosage: STOPPED ON AN UNSPECIFIED DATE AND REINTRODUCED ON APRIL 2006
     Route: 048
     Dates: start: 20051115
  2. ABILIFY [Suspect]
     Route: 048
     Dates: start: 20060401
  3. TERCIAN [Suspect]
     Indication: SLEEP DISORDER
     Route: 048
     Dates: start: 20051115

REACTIONS (4)
  - COUGH [None]
  - PNEUMONITIS [None]
  - PYREXIA [None]
  - SEPTIC SHOCK [None]
